FAERS Safety Report 4936751-X (Version None)
Quarter: 2006Q1

REPORT INFORMATION
  Report Type: 
  Country: None (occurrence: None)
  Receive Date: 20060302
  Receipt Date: 20060216
  Transmission Date: 20060701
  Serious: Yes (Hospitalization)
  Sender: FDA-Public Use
  Company Number: US_0509122155

PATIENT
  Age: 29 Year
  Sex: Female
  Weight: 73.5 kg

DRUGS (16)
  1. ZYPREXA [Suspect]
     Dosage: SEE IMAGE
     Route: 048
     Dates: start: 19970101, end: 19980301
  2. ZYPREXA [Suspect]
     Dosage: SEE IMAGE
     Route: 048
     Dates: start: 19980301, end: 19980401
  3. ZYPREXA [Suspect]
     Dosage: SEE IMAGE
     Route: 048
     Dates: start: 19980401, end: 19990201
  4. ZYPREXA [Suspect]
     Dosage: SEE IMAGE
     Route: 048
     Dates: start: 19990223, end: 20010627
  5. PROZAC [Suspect]
     Dosage: SEE IMAGE
     Route: 048
     Dates: end: 19980322
  6. PROZAC [Suspect]
     Dosage: SEE IMAGE
     Route: 048
     Dates: start: 19980322, end: 19980324
  7. PROZAC [Suspect]
     Dosage: SEE IMAGE
     Route: 048
     Dates: start: 19980324, end: 19980401
  8. PROZAC [Suspect]
     Dosage: SEE IMAGE
     Route: 048
     Dates: start: 19980401
  9. PRENATAL VITAMINS (ASCORBIC ACID, BIOTIN, MINERALS NOS, NICOTINIC ACID [Concomitant]
  10. MAALOX PLUS EXTRA STRENGTH (ALUMINUM HYDROXIDE, MAGNESIUM HYDROXIDE, S [Concomitant]
  11. MEPERIDINE HCL [Concomitant]
  12. MILK OF MAGNESIA TAB [Concomitant]
  13. ALPRAZOLAM [Concomitant]
  14. IRON [Concomitant]
  15. LIBRIUM [Concomitant]
  16. PHENERGAN [Concomitant]

REACTIONS (10)
  - BLOOD CHOLESTEROL ABNORMAL [None]
  - CAESAREAN SECTION [None]
  - DRUG EXPOSURE DURING PREGNANCY [None]
  - GESTATIONAL DIABETES [None]
  - HAEMATOCHEZIA [None]
  - HALLUCINATIONS, MIXED [None]
  - INTENTIONAL OVERDOSE [None]
  - OEDEMA PERIPHERAL [None]
  - PRE-ECLAMPSIA [None]
  - PREGNANCY [None]
